FAERS Safety Report 9392747 (Version 3)
Quarter: 2013Q3

REPORT INFORMATION
  Report Type: Spontaneous
  Country: DE (occurrence: DE)
  Receive Date: 20130710
  Receipt Date: 20130827
  Transmission Date: 20140515
  Serious: Yes (Life-Threatening)
  Sender: FDA-Public Use
  Company Number: DE-JNJFOC-20130702531

PATIENT
  Age: 28 Year
  Sex: Female
  Weight: 59 kg

DRUGS (4)
  1. REMICADE [Suspect]
     Indication: COLITIS ULCERATIVE
     Dosage: DOSE CALCULATED AS PER 5 MG/KG BODY WEIGHT
     Route: 042
     Dates: start: 20130424
  2. REMICADE [Suspect]
     Indication: COLITIS ULCERATIVE
     Route: 042
  3. REMICADE [Suspect]
     Indication: COLITIS ULCERATIVE
     Dosage: 3RD INFUSION
     Route: 042
     Dates: start: 2013, end: 20130605
  4. AZATHIOPRINE [Concomitant]
     Indication: COLITIS ULCERATIVE
     Route: 065
     Dates: start: 20130308

REACTIONS (6)
  - Enterocolitis haemorrhagic [Recovering/Resolving]
  - Circulatory collapse [Recovering/Resolving]
  - Dehydration [Recovering/Resolving]
  - Diarrhoea haemorrhagic [Not Recovered/Not Resolved]
  - Abdominal pain [Not Recovered/Not Resolved]
  - Pyrexia [Not Recovered/Not Resolved]
